FAERS Safety Report 14755937 (Version 3)
Quarter: 2018Q2

REPORT INFORMATION
  Report Type: Spontaneous
  Country: US (occurrence: US)
  Receive Date: 20180413
  Receipt Date: 20180518
  Transmission Date: 20180711
  Serious: No
  Sender: FDA-Public Use
  Company Number: US-PFIZER INC-2018150864

PATIENT
  Age: 12 Year
  Sex: Female

DRUGS (3)
  1. TOPICORT [Concomitant]
     Active Substance: DESOXIMETASONE
     Dosage: UNK
     Route: 061
  2. EUCRISA [Suspect]
     Active Substance: CRISABOROLE
     Dosage: UNK
  3. CYCLOSPORINE. [Concomitant]
     Active Substance: CYCLOSPORINE
     Dosage: UNK
     Dates: start: 201801

REACTIONS (2)
  - Application site dryness [Recovered/Resolved]
  - Erythema [Recovered/Resolved]

NARRATIVE: CASE EVENT DATE: 201802
